FAERS Safety Report 14999644 (Version 1)
Quarter: 2018Q2

REPORT INFORMATION
  Report Type: Report from Study
  Country: None (occurrence: RO)
  Receive Date: 20180612
  Receipt Date: 20180612
  Transmission Date: 20180711
  Serious: Yes (Hospitalization, Other)
  Sender: FDA-Public Use
  Company Number: RO-ABBVIE-18K-135-2381023-00

PATIENT
  Age: 57 Year
  Sex: Male

DRUGS (1)
  1. HUMIRA [Suspect]
     Active Substance: ADALIMUMAB
     Indication: ANKYLOSING SPONDYLITIS
     Route: 058
     Dates: start: 20130115

REACTIONS (5)
  - Constipation [Recovered/Resolved]
  - Colon neoplasm [Not Recovered/Not Resolved]
  - Blood pressure abnormal [Unknown]
  - Hypertension [Not Recovered/Not Resolved]
  - Abdominal distension [Recovered/Resolved]

NARRATIVE: CASE EVENT DATE: 201805
